FAERS Safety Report 12893059 (Version 2)
Quarter: 2016Q4

REPORT INFORMATION
  Report Type: Spontaneous
  Country: DE (occurrence: DE)
  Receive Date: 20161028
  Receipt Date: 20161206
  Transmission Date: 20170207
  Serious: Yes (Other)
  Sender: FDA-Public Use
  Company Number: DE-TEVA-696899GER

PATIENT
  Sex: Female
  Weight: 60 kg

DRUGS (1)
  1. LETROZOL PUREN 2.5 MG [Suspect]
     Active Substance: LETROZOLE
     Indication: BREAST CANCER
     Dosage: 2.5 MILLIGRAM DAILY;
     Route: 048
     Dates: start: 20151120, end: 20160227

REACTIONS (3)
  - Product substitution issue [Unknown]
  - Pancreatitis [Unknown]
  - Depression [Recovering/Resolving]
